FAERS Safety Report 22350485 (Version 1)
Quarter: 2023Q2

REPORT INFORMATION
  Report Type: Spontaneous
  Country: KR (occurrence: KR)
  Receive Date: 20230522
  Receipt Date: 20230522
  Transmission Date: 20230721
  Serious: Yes (Other)
  Sender: FDA-Public Use
  Company Number: KR-MYLANLABS-2023M1051502

PATIENT
  Age: 64 Year
  Sex: Female

DRUGS (1)
  1. CELEBREX [Suspect]
     Active Substance: CELECOXIB
     Indication: Rhinitis allergic
     Dosage: 200 MILLIGRAM, QD
     Route: 048
     Dates: start: 20180415, end: 20180415

REACTIONS (4)
  - Respiratory distress [Recovered/Resolved]
  - Localised oedema [Recovered/Resolved]
  - Dizziness [Recovered/Resolved]
  - Off label use [Unknown]

NARRATIVE: CASE EVENT DATE: 20180415
